FAERS Safety Report 6430031-1 (Version None)
Quarter: 2009Q4

REPORT INFORMATION
  Report Type: 
  Country: None (occurrence: None)
  Receive Date: 20091106
  Receipt Date: 20091029
  Transmission Date: 20100525
  Serious: Yes (Death)
  Sender: FDA-Public Use
  Company Number: US-JNJFOC-20091000186

PATIENT
  Sex: Female
  Weight: 49.44 kg

DRUGS (2)
  1. REMICADE [Suspect]
     Route: 042
     Dates: start: 20080101
  2. REMICADE [Suspect]
     Indication: RHEUMATOID ARTHRITIS
     Route: 042
     Dates: start: 20080101

REACTIONS (5)
  - ANIMAL BITE [None]
  - CELLULITIS [None]
  - OSTEOMYELITIS [None]
  - PNEUMOTHORAX [None]
  - PULMONARY FIBROSIS [None]
